FAERS Safety Report 6914631-8 (Version None)
Quarter: 2010Q3

REPORT INFORMATION
  Report Type: 
  Country: None (occurrence: None)
  Receive Date: 20100809
  Receipt Date: 20100803
  Transmission Date: 20110219
  Serious: Yes (Other)
  Sender: FDA-Public Use
  Company Number: GB-MERCK-1008GBR00015

PATIENT
  Age: 55 Year
  Sex: Male
  Weight: 67 kg

DRUGS (5)
  1. JANUVIA [Suspect]
     Route: 048
     Dates: start: 20100618, end: 20100726
  2. ASPIRIN [Concomitant]
     Route: 065
  3. METFORMIN [Concomitant]
     Route: 065
  4. PIOGLITAZONE HYDROCHLORIDE [Concomitant]
     Route: 065
  5. ZOCOR [Concomitant]
     Route: 048

REACTIONS (2)
  - DECREASED APPETITE [None]
  - DEPRESSED MOOD [None]
